FAERS Safety Report 8331691-0 (Version None)
Quarter: 2012Q2

REPORT INFORMATION
  Report Type: 
  Country: None (occurrence: None)
  Receive Date: 20120502
  Receipt Date: 20120419
  Transmission Date: 20120825
  Serious: No
  Sender: FDA-Public Use
  Company Number: US-ASTRAZENECA-2012SE25514

PATIENT
  Age: 83 Year
  Sex: Female
  Weight: 50.8 kg

DRUGS (5)
  1. ENTOCORT EC [Suspect]
     Indication: COELIAC DISEASE
     Route: 048
     Dates: start: 20111101, end: 20120209
  2. LISINOPRIL [Suspect]
     Indication: HYPERTENSION
     Route: 048
  3. ENTOCORT EC [Suspect]
     Indication: CROHN'S DISEASE
     Route: 048
     Dates: start: 20111101, end: 20120209
  4. ENTOCORT EC [Suspect]
     Route: 048
     Dates: start: 20120209
  5. ENTOCORT EC [Suspect]
     Route: 048
     Dates: start: 20120209

REACTIONS (6)
  - DIARRHOEA [None]
  - VOMITING [None]
  - WEIGHT DECREASED [None]
  - OFF LABEL USE [None]
  - MALAISE [None]
  - GASTRIC DISORDER [None]
